FAERS Safety Report 12185337 (Version 6)
Quarter: 2016Q2

REPORT INFORMATION
  Report Type: Report from Study
  Country: US (occurrence: US)
  Receive Date: 20160316
  Receipt Date: 20160519
  Transmission Date: 20160815
  Serious: Yes (Hospitalization, Other)
  Sender: FDA-Public Use
  Company Number: US-ACTELION-A-US2014-110308

PATIENT
  Age: 74 Year
  Sex: Female

DRUGS (4)
  1. TRACLEER [Suspect]
     Active Substance: BOSENTAN
     Dosage: 125 MG, BID
     Route: 048
     Dates: end: 20160225
  2. TRACLEER [Suspect]
     Active Substance: BOSENTAN
     Indication: PULMONARY ARTERIAL HYPERTENSION
     Dosage: 62.5 MG, BID
     Route: 048
     Dates: start: 20140703
  3. LETAIRIS [Concomitant]
     Active Substance: AMBRISENTAN
  4. TRACLEER [Suspect]
     Active Substance: BOSENTAN
     Dosage: UNK MG, UNK
     Route: 048

REACTIONS (9)
  - Liver injury [Unknown]
  - Alanine aminotransferase increased [Unknown]
  - Sinusitis [Unknown]
  - Liver function test increased [Unknown]
  - Blood alkaline phosphatase increased [Unknown]
  - Nasopharyngitis [Unknown]
  - Renal function test abnormal [Unknown]
  - White blood cell disorder [Unknown]
  - Aspartate aminotransferase increased [Unknown]
